FAERS Safety Report 7538949-3 (Version None)
Quarter: 2011Q2

REPORT INFORMATION
  Report Type: 
  Country: None (occurrence: None)
  Receive Date: 20110603
  Receipt Date: 20110523
  Transmission Date: 20111010
  Serious: Yes (Disabling)
  Sender: FDA-Public Use
  Company Number: GER/GER/11/0018471

PATIENT
  Age: 102 Year
  Sex: Female
  Weight: 45 kg

DRUGS (1)
  1. ALENDRONATE SODIUM [Suspect]
     Indication: OSTEOPOROSIS
     Dosage: 1 DOSAGE FORMS, 1 IN 1 WK, ORAL
     Route: 048
     Dates: start: 20070301, end: 20100301

REACTIONS (2)
  - OSTEONECROSIS OF JAW [None]
  - FISTULA [None]
